FAERS Safety Report 13288280 (Version 1)
Quarter: 2017Q1

REPORT INFORMATION
  Report Type: Spontaneous
  Country: JP (occurrence: JP)
  Receive Date: 20170302
  Receipt Date: 20170302
  Transmission Date: 20170428
  Serious: Yes (Other)
  Sender: FDA-Public Use
  Company Number: JP-MYLANLABS-2017M1012784

PATIENT

DRUGS (4)
  1. DEXAMETHASONE. [Suspect]
     Active Substance: DEXAMETHASONE
     Indication: ANGIOIMMUNOBLASTIC T-CELL LYMPHOMA STAGE IV
     Dosage: TWO COURSES; ADMINSITERED AT TWO THIRD DOSE TO REDUCE TOXICITIES
     Route: 065
  2. MOGAMULIZUMAB [Concomitant]
     Active Substance: MOGAMULIZUMAB
     Indication: ANGIOIMMUNOBLASTIC T-CELL LYMPHOMA STAGE IV
     Dosage: 8 COURSES OF 1MG/KG INFUSION WEEKLY DOSE
     Route: 041
  3. GEMCITABINE [Suspect]
     Active Substance: GEMCITABINE\GEMCITABINE HYDROCHLORIDE
     Indication: ANGIOIMMUNOBLASTIC T-CELL LYMPHOMA STAGE IV
     Dosage: TWO COURSES; ADMINSITERED AT TWO THIRD DOSE TO REDUCE TOXICITIES
     Route: 065
  4. CISPLATIN. [Suspect]
     Active Substance: CISPLATIN
     Indication: ANGIOIMMUNOBLASTIC T-CELL LYMPHOMA STAGE IV
     Dosage: TWO COURSES; ADMINSITERED AT TWO THIRD DOSE TO REDUCE TOXICITIES
     Route: 065

REACTIONS (4)
  - Thrombocytopenia [Unknown]
  - Anaemia [Unknown]
  - Neutropenia [Unknown]
  - Lymphopenia [Unknown]
